FAERS Safety Report 9174595 (Version 1)
Quarter: 2013Q1

REPORT INFORMATION
  Report Type: Spontaneous
  Country: FR (occurrence: FR)
  Receive Date: 20130320
  Receipt Date: 20130320
  Transmission Date: 20140127
  Serious: Yes (Hospitalization)
  Sender: FDA-Public Use
  Company Number: FR-EISAI INC-E7389-03586-SPO-FR

PATIENT
  Age: 68 Year
  Sex: Female

DRUGS (3)
  1. HALAVEN [Suspect]
     Indication: PRODUCT USED FOR UNKNOWN INDICATION
     Dosage: UNKNOWN
     Route: 041
     Dates: start: 20130221, end: 20130221
  2. HALAVEN [Suspect]
     Dosage: UNKNOWN
     Route: 041
     Dates: start: 201303
  3. HALAVEN [Suspect]
     Dosage: UNKNOWN
     Route: 041

REACTIONS (1)
  - Extravasation [Recovered/Resolved]
